FAERS Safety Report 7525507-X (Version None)
Quarter: 2011Q2

REPORT INFORMATION
  Report Type: 
  Country: None (occurrence: None)
  Receive Date: 20110606
  Receipt Date: 20110126
  Transmission Date: 20111010
  Serious: Yes (Hospitalization, Other)
  Sender: FDA-Public Use
  Company Number: US-BAYER-201013036NA

PATIENT
  Age: 31 Year
  Sex: Female
  Weight: 93 kg

DRUGS (2)
  1. NSAID'S [Concomitant]
  2. YAZ [Suspect]
     Indication: ORAL CONTRACEPTION
     Route: 048
     Dates: start: 20070401, end: 20070601

REACTIONS (4)
  - DYSPNOEA [None]
  - ATELECTASIS [None]
  - PULMONARY EMBOLISM [None]
  - CHEST PAIN [None]
